FAERS Safety Report 20627359 (Version 1)
Quarter: 2022Q1

REPORT INFORMATION
  Report Type: Spontaneous
  Country: US (occurrence: US)
  Receive Date: 20220323
  Receipt Date: 20220323
  Transmission Date: 20220423
  Serious: No
  Sender: FDA-Public Use
  Company Number: US-JNJFOC-20190824910

PATIENT
  Sex: Male

DRUGS (1)
  1. STELARA [Suspect]
     Active Substance: USTEKINUMAB
     Indication: Arthritis
     Dosage: 45.00 MG/ 0.50 ML
     Route: 058

REACTIONS (2)
  - Drug ineffective [Unknown]
  - Diarrhoea [Unknown]
